FAERS Safety Report 4660910-7 (Version None)
Quarter: 2005Q2

REPORT INFORMATION
  Report Type: 
  Country: None (occurrence: None)
  Receive Date: 20050511
  Receipt Date: 20050505
  Transmission Date: 20051028
  Serious: Yes (Death)
  Sender: FDA-Public Use
  Company Number: Q05-017

PATIENT
  Age: 64 Year
  Sex: Female
  Weight: 74.3899 kg

DRUGS (2)
  1. QUADRAMET [Suspect]
     Indication: BREAST CANCER
     Dosage: 75 MCI/KG
     Dates: start: 20050310
  2. ULTRACET [Concomitant]

REACTIONS (6)
  - DISEASE PROGRESSION [None]
  - METASTASES TO LIVER [None]
  - NAUSEA [None]
  - ORAL INTAKE REDUCED [None]
  - VOMITING [None]
  - WEIGHT DECREASED [None]
